FAERS Safety Report 10038344 (Version 2)
Quarter: 2014Q2

REPORT INFORMATION
  Report Type: Spontaneous
  Country: BR (occurrence: BR)
  Receive Date: 20140326
  Receipt Date: 20140527
  Transmission Date: 20141212
  Serious: No
  Sender: FDA-Public Use
  Company Number: BR-JNJFOC-20140311891

PATIENT
  Age: 63 Year
  Sex: Male

DRUGS (4)
  1. XARELTO [Suspect]
     Indication: FEMORAL ARTERY OCCLUSION
     Route: 048
     Dates: start: 201307, end: 2013
  2. XARELTO [Suspect]
     Indication: FEMORAL ARTERY OCCLUSION
     Route: 048
  3. XARELTO [Suspect]
     Indication: FEMORAL ARTERY OCCLUSION
     Route: 048
     Dates: start: 201307, end: 2013
  4. XARELTO [Suspect]
     Indication: FEMORAL ARTERY OCCLUSION
     Route: 048

REACTIONS (1)
  - Off label use [Unknown]
